FAERS Safety Report 4922107-2 (Version None)
Quarter: 2006Q1

REPORT INFORMATION
  Report Type: 
  Country: None (occurrence: None)
  Receive Date: 20060222
  Receipt Date: 20060222
  Transmission Date: 20060701
  Serious: Yes (Other)
  Sender: FDA-Public Use
  Company Number: None

PATIENT
  Age: 77 Year
  Sex: Male
  Weight: 79 kg

DRUGS (11)
  1. GATIFLOXACIN [Suspect]
     Indication: INFECTION
     Dosage: 400 MG QDAY PO
     Route: 048
     Dates: start: 20051101, end: 20051103
  2. LORSARTAN [Concomitant]
  3. LORTAB [Concomitant]
  4. SIMVASTATIN [Concomitant]
  5. GLYBURIDE [Concomitant]
  6. GEMFIBROZIL [Concomitant]
  7. FUROSEMIDE [Concomitant]
  8. ALENDRONATE SODIUM [Concomitant]
  9. TRAZODONE [Concomitant]
  10. VIT B COMPLEX [Concomitant]
  11. CA#/VIT D [Concomitant]

REACTIONS (2)
  - DRUG INTERACTION [None]
  - HYPOGLYCAEMIA [None]
